FAERS Safety Report 7918050-7 (Version None)
Quarter: 2011Q4

REPORT INFORMATION
  Report Type: 
  Country: None (occurrence: None)
  Receive Date: 20111116
  Receipt Date: 20111108
  Transmission Date: 20120403
  Serious: Yes (Hospitalization, Disabling, Other)
  Sender: FDA-Public Use
  Company Number: US-MERCK-1105USA01972

PATIENT
  Age: 66 Year
  Sex: Female
  Weight: 77 kg

DRUGS (10)
  1. FOSAMAX [Suspect]
     Route: 048
     Dates: start: 19980101, end: 20100301
  2. ALENDRONATE SODIUM [Suspect]
     Route: 048
     Dates: start: 20100308
  3. FOSAMAX [Suspect]
     Indication: OSTEOPENIA
     Route: 048
     Dates: start: 19980101, end: 20100301
  4. FOSAMAX [Suspect]
     Route: 048
     Dates: start: 20080301, end: 20080808
  5. ALENDRONATE SODIUM [Suspect]
     Indication: OSTEOPENIA
     Route: 048
     Dates: start: 20090917, end: 20091229
  6. FOSAMAX [Suspect]
     Route: 048
     Dates: start: 19980101, end: 20100301
  7. VITAMINS (UNSPECIFIED) [Concomitant]
     Route: 065
  8. FOSAMAX [Suspect]
     Indication: OSTEOPOROSIS
     Route: 048
     Dates: start: 19980101, end: 20100301
  9. ALENDRONATE SODIUM [Suspect]
     Indication: OSTEOPOROSIS
     Route: 048
     Dates: start: 20090917, end: 20091229
  10. ALENDRONATE SODIUM [Suspect]
     Route: 048
     Dates: start: 20080903, end: 20090501

REACTIONS (71)
  - BREAST CANCER [None]
  - RIB FRACTURE [None]
  - OVERDOSE [None]
  - SLEEP DISORDER [None]
  - HAEMORRHAGIC ANAEMIA [None]
  - CARDIAC MURMUR [None]
  - DERMATITIS [None]
  - ANAEMIA OF CHRONIC DISEASE [None]
  - HYPONATRAEMIA [None]
  - BURSITIS [None]
  - TIBIA FRACTURE [None]
  - STRESS FRACTURE [None]
  - FRACTURE DELAYED UNION [None]
  - SKIN LESION [None]
  - EXCORIATION [None]
  - SINUSITIS [None]
  - VITAMIN D DEFICIENCY [None]
  - NAUSEA [None]
  - LARYNGITIS [None]
  - IRON DEFICIENCY ANAEMIA [None]
  - RENAL FAILURE [None]
  - HYPERTENSION [None]
  - CARDIOMEGALY [None]
  - FEMUR FRACTURE [None]
  - TEMPOROMANDIBULAR JOINT SYNDROME [None]
  - GASTRITIS [None]
  - DYSPHAGIA [None]
  - HYPERLIPIDAEMIA [None]
  - HELICOBACTER TEST POSITIVE [None]
  - MUSCULOSKELETAL DISCOMFORT [None]
  - ANAEMIA POSTOPERATIVE [None]
  - COLITIS ISCHAEMIC [None]
  - ABDOMINAL PAIN [None]
  - PAIN IN EXTREMITY [None]
  - OESOPHAGEAL STENOSIS [None]
  - DEEP VEIN THROMBOSIS [None]
  - GINGIVAL DISORDER [None]
  - HIP DEFORMITY [None]
  - BASAL CELL CARCINOMA [None]
  - FALL [None]
  - LEUKOCYTOSIS [None]
  - LIMB ASYMMETRY [None]
  - NEPHROPATHY [None]
  - FOOT DEFORMITY [None]
  - ARTERIOSCLEROSIS [None]
  - POST PROCEDURAL CONSTIPATION [None]
  - OSTEOARTHRITIS [None]
  - ULCER [None]
  - ENTEROCOLITIS HAEMORRHAGIC [None]
  - SUBCLAVIAN ARTERY OCCLUSION [None]
  - PERIPHERAL VASCULAR DISORDER [None]
  - TRANSIENT ISCHAEMIC ATTACK [None]
  - EYE DISORDER [None]
  - DIVERTICULUM [None]
  - HYPERCHOLESTEROLAEMIA [None]
  - CONTUSION [None]
  - FRACTURE NONUNION [None]
  - SYNCOPE [None]
  - OESOPHAGEAL DISORDER [None]
  - ARTHRALGIA [None]
  - GASTRITIS EROSIVE [None]
  - LOW TURNOVER OSTEOPATHY [None]
  - ARTHROPATHY [None]
  - INTERNATIONAL NORMALISED RATIO INCREASED [None]
  - INTERVERTEBRAL DISC DEGENERATION [None]
  - OSTEOPOROSIS [None]
  - TOOTH DISORDER [None]
  - ATROPHIC VULVOVAGINITIS [None]
  - POSTMENOPAUSAL HAEMORRHAGE [None]
  - CALCIUM DEFICIENCY [None]
  - ARTHRITIS [None]
